FAERS Safety Report 5579954-6 (Version None)
Quarter: 2008Q1

REPORT INFORMATION
  Report Type: 
  Country: None (occurrence: None)
  Receive Date: 20080103
  Receipt Date: 20080103
  Transmission Date: 20080703
  Serious: Yes (Death, Life-Threatening, Hospitalization)
  Sender: FDA-Public Use
  Company Number: PHHO2002US09839

PATIENT
  Age: 81 Year
  Sex: Male
  Weight: 63.7 kg

DRUGS (10)
  1. ZOLEDRONIC ACID [Suspect]
     Indication: OSTEOPOROTIC FRACTURE
     Dosage: DOUBLE BLIND
     Route: 042
     Dates: start: 20021030
  2. ZOLEDRONIC ACID [Suspect]
     Dosage: 5MG, ONCE YEARLY
  3. VITAMIN D [Concomitant]
     Dosage: 400 IU, BID
     Route: 048
  4. CALCIUM CARBONATE [Concomitant]
     Dosage: 500 MG, BID
     Route: 048
  5. ASPIRIN [Suspect]
     Dosage: 325
     Route: 048
     Dates: start: 20021118, end: 20021121
  6. COUMADIN [Suspect]
     Route: 048
     Dates: start: 20021006, end: 20021121
  7. TOBRAMYCIN [Suspect]
     Indication: OSTEOMYELITIS
     Dosage: 60 MG, Q12H
     Route: 042
     Dates: start: 20030424, end: 20030426
  8. VANCOMYCIN [Concomitant]
     Dosage: UNK, QD
     Dates: start: 20030430
  9. VANCOMYCIN [Concomitant]
     Dates: end: 20030429
  10. PRINIVIL [Concomitant]
     Dates: start: 20021001, end: 20030130

REACTIONS (27)
  - ANAEMIA [None]
  - ARTERIAL BYPASS OPERATION [None]
  - ASCITES [None]
  - CELLULITIS [None]
  - DEBRIDEMENT [None]
  - DIALYSIS [None]
  - DISEASE PROGRESSION [None]
  - DIVERTICULUM [None]
  - ELECTROCARDIOGRAM ABNORMAL [None]
  - ELECTROLYTE IMBALANCE [None]
  - FEMORAL ARTERY OCCLUSION [None]
  - GASTROINTESTINAL HAEMORRHAGE [None]
  - GLOMERULONEPHRITIS [None]
  - HYPOTENSION [None]
  - MELAENA [None]
  - MULTI-ORGAN FAILURE [None]
  - MUSCLE HAEMORRHAGE [None]
  - NEPHROSCLEROSIS [None]
  - OSTEOMYELITIS [None]
  - PROTEINURIA [None]
  - PYREXIA [None]
  - RECTAL HAEMORRHAGE [None]
  - RECTAL ULCER [None]
  - RENAL FAILURE [None]
  - SEPSIS [None]
  - SKIN ULCER [None]
  - THROMBOCYTOPENIA [None]
